FAERS Safety Report 9172190 (Version 1)
Quarter: 2013Q1

REPORT INFORMATION
  Report Type: Report from Study
  Country: GB (occurrence: GB)
  Receive Date: 20130319
  Receipt Date: 20130319
  Transmission Date: 20140127
  Serious: Yes (Hospitalization)
  Sender: FDA-Public Use
  Company Number: GB-BAXTER-2013BAX009462

PATIENT
  Age: 14 Year
  Sex: Male
  Weight: 51.9 kg

DRUGS (27)
  1. IFOSFAMIDE [Suspect]
     Indication: NEOPLASM MALIGNANT
     Route: 042
     Dates: start: 20121102
  2. IFOSFAMIDE [Suspect]
     Route: 042
     Dates: start: 20121123
  3. IFOSFAMIDE [Suspect]
     Route: 042
     Dates: start: 20121124
  4. IFOSFAMIDE [Suspect]
     Route: 042
     Dates: start: 20130216
  5. VINCRISTINE [Suspect]
     Indication: NEOPLASM MALIGNANT
     Route: 040
     Dates: start: 20121130
  6. VINCRISTINE [Suspect]
     Route: 040
     Dates: start: 20121123
  7. VINCRISTINE [Suspect]
     Route: 042
     Dates: start: 20121102
  8. VINCRISTINE [Suspect]
     Route: 042
     Dates: start: 20130215
  9. DACTINOMYCIN [Suspect]
     Indication: NEOPLASM MALIGNANT
     Route: 040
     Dates: start: 20121102
  10. DACTINOMYCIN [Suspect]
     Route: 040
     Dates: start: 20121123
  11. DACTINOMYCIN [Suspect]
     Route: 040
     Dates: start: 20130215
  12. DOXORUBICIN [Suspect]
     Indication: NEOPLASM MALIGNANT
     Route: 042
     Dates: start: 20121102, end: 20121102
  13. DOXORUBICIN [Suspect]
     Route: 042
     Dates: start: 20121103
  14. DOXORUBICIN [Suspect]
     Route: 042
     Dates: start: 20121123
  15. MOVICOL [Concomitant]
     Indication: PRODUCT USED FOR UNKNOWN INDICATION
     Dosage: 2 SACHETS
     Route: 065
     Dates: start: 20121101
  16. LACTULOSE [Concomitant]
     Indication: PRODUCT USED FOR UNKNOWN INDICATION
     Route: 065
  17. LACTULOSE [Concomitant]
     Route: 065
     Dates: start: 20121101
  18. SENNA [Concomitant]
     Indication: PRODUCT USED FOR UNKNOWN INDICATION
     Route: 065
     Dates: start: 20121101
  19. ONDANSETRON [Concomitant]
     Indication: PRODUCT USED FOR UNKNOWN INDICATION
     Route: 065
     Dates: start: 20121102
  20. CYCLIZINE [Concomitant]
     Indication: PRODUCT USED FOR UNKNOWN INDICATION
     Route: 065
     Dates: start: 20121102
  21. PARACETAMOL [Concomitant]
     Indication: PRODUCT USED FOR UNKNOWN INDICATION
     Route: 065
     Dates: start: 20121102
  22. MORPHINE SULFATE [Concomitant]
     Indication: PRODUCT USED FOR UNKNOWN INDICATION
     Route: 065
     Dates: start: 20121101
  23. MORPHINE SULFATE [Concomitant]
     Dosage: 10-15 MG
     Route: 065
     Dates: start: 20121101
  24. BISACODYL [Concomitant]
     Indication: PRODUCT USED FOR UNKNOWN INDICATION
     Route: 065
     Dates: start: 20121101
  25. ZOMORPH [Concomitant]
     Indication: PRODUCT USED FOR UNKNOWN INDICATION
     Route: 065
     Dates: start: 20121101
  26. SEPTRIN [Concomitant]
     Indication: PRODUCT USED FOR UNKNOWN INDICATION
     Route: 065
     Dates: start: 20121101
  27. GELCLAIR [Concomitant]
     Indication: PRODUCT USED FOR UNKNOWN INDICATION
     Route: 065
     Dates: start: 20121109

REACTIONS (2)
  - Headache [Recovered/Resolved]
  - Febrile neutropenia [Recovered/Resolved]
